FAERS Safety Report 5528157-X (Version None)
Quarter: 2007Q4

REPORT INFORMATION
  Report Type: 
  Country: None (occurrence: None)
  Receive Date: 20071128
  Receipt Date: 20071119
  Transmission Date: 20080405
  Serious: Yes (Life-Threatening, Hospitalization)
  Sender: FDA-Public Use
  Company Number: FR-PFIZER INC-2007082838

PATIENT
  Sex: Male
  Weight: 79 kg

DRUGS (4)
  1. CELEBREX [Suspect]
     Route: 048
     Dates: start: 20070826, end: 20070101
  2. AMLOR [Concomitant]
     Route: 048
  3. COKENZEN [Concomitant]
     Route: 048
  4. MISOPROSTOL [Concomitant]
     Route: 048

REACTIONS (1)
  - MYELODYSPLASTIC SYNDROME [None]
